FAERS Safety Report 11298364 (Version 1)
Quarter: 2015Q3

REPORT INFORMATION
  Report Type: Spontaneous
  Country: US (occurrence: US)
  Receive Date: 20150722
  Receipt Date: 20150722
  Transmission Date: 20151125
  Serious: No
  Sender: FDA-Public Use
  Company Number: US-ELI_LILLY_AND_COMPANY-US201108008873

PATIENT
  Sex: Male

DRUGS (7)
  1. HUMATROPE [Suspect]
     Active Substance: SOMATROPIN
     Dosage: 2 MG, UNKNOWN
  2. HUMATROPE [Suspect]
     Active Substance: SOMATROPIN
     Dosage: 2 MG, UNKNOWN
  3. HUMATROPE [Suspect]
     Active Substance: SOMATROPIN
     Dosage: 2 MG, UNKNOWN
  4. HUMATROPE [Suspect]
     Active Substance: SOMATROPIN
     Indication: HYPOPITUITARISM
     Dosage: 2 MG, UNKNOWN
  5. HUMATROPE [Suspect]
     Active Substance: SOMATROPIN
     Dosage: 2 MG, UNKNOWN
  6. HUMATROPE [Suspect]
     Active Substance: SOMATROPIN
     Dosage: 2 MG, UNKNOWN
  7. HUMATROPE [Suspect]
     Active Substance: SOMATROPIN
     Dosage: 2 MG, UNKNOWN

REACTIONS (8)
  - Piloerection [Unknown]
  - Injection site pain [Unknown]
  - Atrophy [Unknown]
  - Pyrexia [Unknown]
  - Fatigue [Unknown]
  - Underdose [Unknown]
  - Wrong technique in product usage process [Unknown]
  - Injection site bruising [Unknown]
